FAERS Safety Report 5283653-8 (Version None)
Quarter: 2007Q1

REPORT INFORMATION
  Report Type: 
  Country: None (occurrence: None)
  Receive Date: 20061226
  Receipt Date: 20060920
  Transmission Date: 20070707
  Serious: Yes (Other)
  Sender: FDA-Public Use
  Company Number: 2006S1000226

PATIENT
  Age: 60 Year
  Sex: Female

DRUGS (1)
  1. ACITRETIN [Suspect]
     Indication: ICHTHYOSIS
     Dosage: 0.5 MG/KG;QD;PO
     Route: 048

REACTIONS (3)
  - BACK PAIN [None]
  - EXOSTOSIS [None]
  - MUSCULOSKELETAL STIFFNESS [None]
